FAERS Safety Report 6945456-5 (Version None)
Quarter: 2010Q3

REPORT INFORMATION
  Report Type: 
  Country: None (occurrence: None)
  Receive Date: 20100827
  Receipt Date: 20100816
  Transmission Date: 20110219
  Serious: Yes (Disabling)
  Sender: FDA-Public Use
  Company Number: IR-SANOFI-AVENTIS-2010SA049916

PATIENT
  Sex: Male

DRUGS (2)
  1. CLOPIDOGREL BISULFATE [Suspect]
     Route: 048
     Dates: start: 20100717
  2. CLOPIDOGREL BISULFATE [Suspect]
     Route: 048
     Dates: start: 20100717

REACTIONS (5)
  - ASPHYXIA [None]
  - DISABILITY [None]
  - DYSPHAGIA [None]
  - DYSPHONIA [None]
  - VOCAL CORD PARALYSIS [None]
